FAERS Safety Report 7089430-X (Version None)
Quarter: 2010Q4

REPORT INFORMATION
  Report Type: 
  Country: None (occurrence: None)
  Receive Date: 20101108
  Receipt Date: 20101029
  Transmission Date: 20110411
  Serious: Yes (Death, Other)
  Sender: FDA-Public Use
  Company Number: GXKR2010GB10433

PATIENT
  Age: 70 Year
  Sex: Female
  Weight: 26.4 kg

DRUGS (12)
  1. FLUCONAZOLE [Suspect]
     Indication: SYSTEMIC CANDIDA
     Dosage: UNK
     Route: 048
     Dates: start: 20100111
  2. WARFARIN (NGX) [Interacting]
     Dosage: UNK
     Route: 048
     Dates: end: 20100131
  3. ATORVASTATIN [Concomitant]
  4. CALPOL [Concomitant]
     Route: 048
  5. AMPICILLIN SODIUM/SULBACTAM SODIUM [Concomitant]
     Indication: LOWER RESPIRATORY TRACT INFECTION
  6. AMPICILLIN SODIUM/SULBACTAM SODIUM [Concomitant]
     Indication: COUGH
  7. CODEINE PHOSPHATE [Concomitant]
     Route: 048
  8. COD-LIVER OIL [Concomitant]
     Route: 048
  9. FUROSEMIDE [Concomitant]
  10. ASCORBIC ACID [Concomitant]
     Route: 048
  11. VITAMIN D [Concomitant]
     Route: 048
  12. VITAMIN E [Concomitant]
     Route: 048

REACTIONS (19)
  - ACCIDENTAL DEATH [None]
  - CEREBRAL HAEMORRHAGE [None]
  - CONTUSION [None]
  - DIZZINESS [None]
  - DRUG INTERACTION [None]
  - EXCORIATION [None]
  - HAEMARTHROSIS [None]
  - HAEMORRHAGE [None]
  - HEADACHE [None]
  - INTERNATIONAL NORMALISED RATIO INCREASED [None]
  - JAUNDICE [None]
  - LOWER RESPIRATORY TRACT INFECTION [None]
  - MUSCLE ATROPHY [None]
  - POST THROMBOTIC SYNDROME [None]
  - SPINAL DEFORMITY [None]
  - SUBARACHNOID HAEMORRHAGE [None]
  - VIITH NERVE PARALYSIS [None]
  - VOMITING [None]
  - WRONG TECHNIQUE IN DRUG USAGE PROCESS [None]
